FAERS Safety Report 8851699 (Version 1)
Quarter: 2012Q4

REPORT INFORMATION
  Report Type: 
  Country: GB (occurrence: GB)
  Receive Date: 20121022
  Receipt Date: 20121022
  Transmission Date: 20130627
  Serious: Yes (Hospitalization)
  Sender: FDA-Public Use
  Company Number: GB-ACCORD-014963

PATIENT
  Age: 61 Year
  Sex: Female
  Weight: 66.89 kg

DRUGS (2)
  1. AVASTIN [Suspect]
     Indication: MALIGNANT BREAST NEOPLASM
     Route: 042
     Dates: start: 20120612, end: 20120912
  2. PACLITAXEL [Suspect]
     Indication: MALIGNANT BREAST NEOPLASM

REACTIONS (3)
  - Pyrexia [Recovered/Resolved]
  - Anorexia [Unknown]
  - Decreased haemoglobin [Recovered/Resolved]
